FAERS Safety Report 20717377 (Version 1)
Quarter: 2022Q2

REPORT INFORMATION
  Report Type: Spontaneous
  Country: US (occurrence: US)
  Receive Date: 20220417
  Receipt Date: 20220417
  Transmission Date: 20220720
  Serious: No
  Sender: FDA-Public Use
  Company Number: US-SA-SAC20220413000930

PATIENT
  Age: 50 Year
  Sex: Female

DRUGS (10)
  1. AUBAGIO [Suspect]
     Active Substance: TERIFLUNOMIDE
     Indication: Multiple sclerosis
     Dosage: 1 DF, QD
     Route: 048
     Dates: start: 2011
  2. VITAMINS [Concomitant]
     Active Substance: VITAMINS
  3. BACLOFEN [Concomitant]
     Active Substance: BACLOFEN
     Indication: Multiple sclerosis
  4. TRAZODONE HCL [Concomitant]
     Active Substance: TRAZODONE HYDROCHLORIDE
  5. OXYCODONE [Concomitant]
     Active Substance: OXYCODONE
  6. ACETAMINOPHEN [Concomitant]
     Active Substance: ACETAMINOPHEN
  7. ALEVE [Concomitant]
     Active Substance: NAPROXEN SODIUM
  8. BEE POLLEN [Concomitant]
     Active Substance: BEE POLLEN
  9. ZINC [Concomitant]
     Active Substance: ZINC
  10. BENADRYL DR [Concomitant]

REACTIONS (3)
  - Contusion [Unknown]
  - Aggression [Unknown]
  - Tenderness [Unknown]

NARRATIVE: CASE EVENT DATE: 20220408
